FAERS Safety Report 22651067 (Version 1)
Quarter: 2023Q2

REPORT INFORMATION
  Report Type: Report from Study
  Country: US (occurrence: None)
  Receive Date: 20230628
  Receipt Date: 20230628
  Transmission Date: 20230721
  Serious: Yes (Hospitalization)
  Sender: FDA-Public Use
  Company Number: 2023A145182

PATIENT
  Age: 4266 Week
  Sex: Male

DRUGS (1)
  1. CALQUENCE [Suspect]
     Active Substance: ACALABRUTINIB
     Indication: Chronic lymphocytic leukaemia
     Route: 048
     Dates: start: 20230301

REACTIONS (11)
  - Syncope [Unknown]
  - Heart rate decreased [Unknown]
  - Blood potassium increased [Unknown]
  - Hypertension [Unknown]
  - Dizziness [Unknown]
  - Renal impairment [Unknown]
  - Pruritus [Unknown]
  - Insomnia [Unknown]
  - Decreased activity [Unknown]
  - Depression [Unknown]
  - Product dose omission issue [Unknown]
